FAERS Safety Report 5955090-1 (Version None)
Quarter: 2008Q4

REPORT INFORMATION
  Report Type: 
  Country: None (occurrence: None)
  Receive Date: 20081117
  Receipt Date: 20081111
  Transmission Date: 20090506
  Serious: Yes (Life-Threatening, Hospitalization)
  Sender: FDA-Public Use
  Company Number: D0058979A

PATIENT
  Age: 24 Year
  Sex: Female

DRUGS (4)
  1. IMIGRAN [Suspect]
     Indication: MIGRAINE
     Dosage: 50MG PER DAY
     Route: 048
     Dates: start: 20080823, end: 20080823
  2. ASPISOL [Concomitant]
     Route: 042
     Dates: start: 20080823, end: 20080823
  3. METOCLOPRAMIDE [Concomitant]
     Route: 042
     Dates: start: 20080823, end: 20080823
  4. ORAL CONTRACEPTIVE [Concomitant]
     Indication: ORAL CONTRACEPTION
     Route: 048

REACTIONS (2)
  - CAVERNOUS SINUS THROMBOSIS [None]
  - MUSCULOSKELETAL STIFFNESS [None]
